FAERS Safety Report 9005041 (Version 1)
Quarter: 2013Q1

REPORT INFORMATION
  Report Type: Spontaneous
  Country: US (occurrence: None)
  Receive Date: 20130107
  Receipt Date: 20130107
  Transmission Date: 20140127
  Serious: Yes (Death)
  Sender: FDA-Public Use
  Company Number: None

PATIENT
  Age: 16 Year
  Sex: Male
  Weight: 79.5 kg

DRUGS (2)
  1. CLARAVIS [Suspect]
     Indication: ACNE
     Route: 048
     Dates: start: 20120522, end: 20120911
  2. ISOTRETINOIN [Suspect]
     Route: 048
     Dates: start: 20121024, end: 201212

REACTIONS (3)
  - Completed suicide [None]
  - Product substitution issue [None]
  - Product quality issue [None]
